FAERS Safety Report 4827808-2 (Version None)
Quarter: 2005Q4

REPORT INFORMATION
  Report Type: 
  Country: None (occurrence: None)
  Receive Date: 20051114
  Receipt Date: 20051114
  Transmission Date: 20060501
  Serious: Yes (Life-Threatening, Hospitalization)
  Sender: FDA-Public Use
  Company Number: None

PATIENT
  Age: 67 Year
  Sex: Female

DRUGS (8)
  1. ENALAPRIL  5MG [Suspect]
     Indication: HYPERTENSION
     Dosage: 5 MG   BID   PO
     Route: 048
  2. GABAPENTIN [Concomitant]
  3. NIFEDIPINE [Concomitant]
  4. ESCITALOPRAM OXALATE [Concomitant]
  5. LABETOLOL [Concomitant]
  6. MIRTAZAPINE [Concomitant]
  7. QUETIAPINE FUMARATE [Concomitant]
  8. AMLODIPINE [Concomitant]

REACTIONS (3)
  - ANGIONEUROTIC OEDEMA [None]
  - DYSKINESIA [None]
  - SWOLLEN TONGUE [None]
